FAERS Safety Report 7485018-7 (Version None)
Quarter: 2011Q2

REPORT INFORMATION
  Report Type: 
  Country: None (occurrence: None)
  Receive Date: 20110517
  Receipt Date: 20101011
  Transmission Date: 20111010
  Serious: No
  Sender: FDA-Public Use
  Company Number: US-BAYER-201022676BCC

PATIENT
  Age: 21 Year
  Sex: Male
  Weight: 59.091 kg

DRUGS (1)
  1. ALEVE (CAPLET) [Suspect]
     Indication: HANGOVER
     Route: 048

REACTIONS (3)
  - SWELLING FACE [None]
  - EYE SWELLING [None]
  - NASAL OEDEMA [None]
